FAERS Safety Report 4578154-6 (Version None)
Quarter: 2005Q1

REPORT INFORMATION
  Report Type: 
  Country: None (occurrence: None)
  Receive Date: 20050211
  Receipt Date: 20050202
  Transmission Date: 20050727
  Serious: Yes (Life-Threatening, Disabling, Other)
  Sender: FDA-Public Use
  Company Number: GB-JNJFOC-20050201377

PATIENT
  Age: 91 Year
  Sex: Female
  Weight: 52.27 kg

DRUGS (4)
  1. RISPERDAL [Suspect]
     Route: 049
  2. RANITIDINE [Concomitant]
  3. ACETAMINOPHEN [Concomitant]
     Dosage: TWO TO BE TAKEN FOUR TIMES A DAY AS REQUIRED
  4. LACTULOSE [Concomitant]

REACTIONS (3)
  - HYPOTHERMIA [None]
  - LOWER RESPIRATORY TRACT INFECTION [None]
  - PERIPHERAL ISCHAEMIA [None]
